FAERS Safety Report 4274501-3 (Version None)
Quarter: 2004Q1

REPORT INFORMATION
  Report Type: 
  Country: None (occurrence: None)
  Receive Date: 20040120
  Receipt Date: 20040120
  Transmission Date: 20041129
  Serious: No
  Sender: FDA-Public Use
  Company Number: None

PATIENT
  Age: 33 Year
  Sex: Male
  Weight: 104.3273 kg

DRUGS (3)
  1. PAXIL CR [Suspect]
     Indication: ANXIETY
     Dosage: DAILY 25 MG FOR 3 WEEK
     Dates: start: 20031231, end: 20040118
  2. PAXIL CR [Suspect]
     Indication: BIPOLAR DISORDER
     Dosage: DAILY 25 MG FOR 3 WEEK
     Dates: start: 20031231, end: 20040118
  3. PAXIL CR [Suspect]
     Indication: DEPRESSION
     Dosage: DAILY 25 MG FOR 3 WEEK
     Dates: start: 20031231, end: 20040118

REACTIONS (5)
  - ANXIETY [None]
  - CONDITION AGGRAVATED [None]
  - FEELING COLD [None]
  - PANIC ATTACK [None]
  - PARAESTHESIA [None]
